FAERS Safety Report 18545496 (Version 1)
Quarter: 2020Q4

REPORT INFORMATION
  Report Type: Spontaneous
  Country: US (occurrence: US)
  Receive Date: 20201125
  Receipt Date: 20201125
  Transmission Date: 20210114
  Serious: Yes (Hospitalization, Other)
  Sender: FDA-Public Use
  Company Number: US-ELI_LILLY_AND_COMPANY-US202011006510

PATIENT
  Age: 92 Year
  Sex: Female

DRUGS (5)
  1. HUMALOG [Suspect]
     Active Substance: INSULIN LISPRO
     Indication: TYPE 2 DIABETES MELLITUS
     Dosage: UNK UNK, UNKNOWN
     Route: 058
     Dates: start: 201605, end: 201611
  2. HUMALOG [Suspect]
     Active Substance: INSULIN LISPRO
     Dosage: 14-19 U, DAILY AT LUNCH
     Route: 058
     Dates: start: 20200923
  3. HUMALOG [Suspect]
     Active Substance: INSULIN LISPRO
     Dosage: 14-19 U, DAILY AT DINNER
     Route: 058
     Dates: start: 20200923
  4. LANTUS [Concomitant]
     Active Substance: INSULIN GLARGINE
     Indication: TYPE 2 DIABETES MELLITUS
     Dosage: 16 U, EACH MORNING
     Dates: start: 2017
  5. HUMALOG [Suspect]
     Active Substance: INSULIN LISPRO
     Dosage: 4-19 U, EACH MORNING
     Route: 058
     Dates: start: 20200923

REACTIONS (3)
  - Cerebrovascular accident [Recovered/Resolved]
  - Cerebrovascular accident [Not Recovered/Not Resolved]
  - General physical health deterioration [Not Recovered/Not Resolved]

NARRATIVE: CASE EVENT DATE: 20190507
